FAERS Safety Report 8730340 (Version 2)
Quarter: 2012Q4

REPORT INFORMATION
  Report Type: 
  Country: KR (occurrence: KR)
  Receive Date: 20120817
  Receipt Date: 20120907
  Transmission Date: 20130627
  Serious: Yes (Hospitalization)
  Sender: FDA-Public Use
  Company Number: KR-ELI_LILLY_AND_COMPANY-KR201208002856

PATIENT
  Age: 69 Year
  Sex: Female

DRUGS (5)
  1. BYETTA [Suspect]
     Indication: TYPE 2 DIABETES MELLITUS
     Dosage: 5 ug, bid
     Route: 058
     Dates: start: 20120704, end: 20120728
  2. BYETTA [Suspect]
     Dosage: 10 ug, bid
     Route: 058
     Dates: start: 20120729
  3. ANTIHYPERTENSIVES [Concomitant]
     Indication: HYPERTENSION
  4. LIPID MODIFYING AGENTS [Concomitant]
     Indication: HYPERLIPIDAEMIA
  5. DRUG USED IN DIABETES [Concomitant]
     Indication: TYPE 2 DIABETES MELLITUS

REACTIONS (2)
  - Humerus fracture [Not Recovered/Not Resolved]
  - Fall [Unknown]
